FAERS Safety Report 5496722-4 (Version None)
Quarter: 2007Q4

REPORT INFORMATION
  Report Type: 
  Country: None (occurrence: None)
  Receive Date: 20071023
  Receipt Date: 20071023
  Transmission Date: 20080405
  Serious: Yes (Life-Threatening)
  Sender: FDA-Public Use
  Company Number: None

PATIENT
  Age: 27 Year
  Sex: Female
  Weight: 54.4316 kg

DRUGS (1)
  1. CHANTIX [Suspect]
     Indication: SMOKING CESSATION THERAPY
     Dosage: .5  THEN 1MG TWICE A DAY  2 TIMES PER DAY  PO
     Route: 048
     Dates: start: 20070825, end: 20070902

REACTIONS (6)
  - DEPRESSION [None]
  - DYSPHEMIA [None]
  - NAUSEA [None]
  - NIGHTMARE [None]
  - VICTIM OF CRIME [None]
  - VOMITING [None]
